FAERS Safety Report 7607940-0 (Version None)
Quarter: 2011Q3

REPORT INFORMATION
  Report Type: 
  Country: None (occurrence: None)
  Receive Date: 20110714
  Receipt Date: 20110125
  Transmission Date: 20111222
  Serious: Yes (Death, Other)
  Sender: FDA-Public Use
  Company Number: US-BAYER-200940618NA

PATIENT
  Age: 59 Year
  Sex: Female
  Weight: 65 kg

DRUGS (42)
  1. TRASYLOL [Suspect]
     Indication: CORONARY ARTERY BYPASS
     Dosage: UNK
     Route: 042
     Dates: start: 20010201
  2. CIPROFLOXACIN HCL [Concomitant]
     Dosage: 750 MG, BID
     Route: 048
     Dates: start: 20010204
  3. THROMBIN LOCAL SOLUTION [Concomitant]
     Dosage: 5,000 UNITS
     Route: 042
  4. ZAROXOLYN [Concomitant]
  5. SOLU-MEDROL [Concomitant]
     Dosage: UNK
     Route: 042
     Dates: start: 20010128
  6. CLINDAMYCIN [Concomitant]
     Dosage: 600 MG, TID
     Route: 048
     Dates: start: 20010128
  7. ACETYLSALICYLIC ACID SRT [Concomitant]
     Dosage: 325 MG, QD
     Route: 048
  8. SPIRONOLACTONE [Concomitant]
     Dosage: 25 MG, QD
     Route: 048
  9. SYNTHROID [Concomitant]
     Route: 048
  10. HEPARIN [Concomitant]
     Dosage: 2000 UNITS
     Route: 013
     Dates: start: 20010106
  11. COUMADIN [Concomitant]
  12. LOPRESSOR [Concomitant]
     Dosage: 12.5 MG, BID
     Route: 048
  13. LOPRESSOR [Concomitant]
     Dosage: 50 MG, TID
     Route: 048
  14. NITROGLYCERIN [Concomitant]
     Dosage: 250 MCG
     Route: 022
     Dates: start: 20010106
  15. ENALAPRIL MALEATE [Concomitant]
     Dosage: 5 MG, QD
     Route: 048
  16. LEVOTHYROXINE [Concomitant]
     Dosage: 112 MCG/24HR, QD
     Route: 048
  17. DIPRIVAN [Concomitant]
     Route: 042
  18. MORPHINE [Concomitant]
     Dosage: AS NEEDED
     Route: 042
  19. DIGOXIN [Concomitant]
     Dosage: 25 MG, QD
     Route: 048
  20. FENTANYL [Concomitant]
     Route: 042
  21. VANCOMYCIN [Concomitant]
     Dosage: 1 GRAM
     Route: 042
  22. LOVENOX [Concomitant]
     Route: 058
  23. MEPERIDINE HCL [Concomitant]
     Dosage: AS NEEDED
     Route: 042
  24. INTEGRILIN [Concomitant]
     Dosage: UNK
     Route: 042
     Dates: start: 20010101
  25. TRASYLOL [Suspect]
     Indication: INTRA-AORTIC BALLOON PLACEMENT
  26. PROTAMINE SULFATE [Concomitant]
     Route: 042
  27. INSULIN [Concomitant]
     Route: 042
  28. LANOXIN [Concomitant]
     Dosage: 0.125 MG, QD
     Route: 048
  29. ANCEF [Concomitant]
     Dosage: 1 G, TID
     Route: 042
     Dates: start: 20010206
  30. PLATELETS [Concomitant]
     Dosage: 6 PACK
     Route: 042
     Dates: start: 20010227
  31. LASIX [Concomitant]
     Dosage: 40 MG, QD
     Route: 048
  32. VERSED [Concomitant]
     Route: 042
  33. NORVASC [Concomitant]
     Dosage: 10 MG, QD
     Route: 048
  34. VASOTEC [Concomitant]
     Route: 042
  35. RED BLOOD CELLS [Concomitant]
     Dosage: 4 UNITS
     Route: 042
     Dates: start: 20010227
  36. FRESH FROZEN PLASMA [Concomitant]
     Dosage: 4 U, ONCE
     Route: 042
     Dates: start: 20010227
  37. INSULIN HUMULIN [Concomitant]
     Dosage: 35 U, BID
     Route: 058
  38. NITROGLYCERIN [Concomitant]
     Indication: CHEST PAIN
     Dosage: .24MG AS NEEDED
     Route: 060
  39. TYLENOL W/ CODEINE [Concomitant]
     Indication: PAIN
     Dosage: 1 TAB EVERY 4-6 HOURS AS NEEDED
     Route: 048
  40. HEPARIN [Concomitant]
     Route: 042
  41. CAPTOPRIL [Concomitant]
     Dosage: 12.5 MG, TID
     Route: 048
  42. PRINIVIL [Concomitant]
     Dosage: 60 MG, QD
     Route: 048

REACTIONS (14)
  - DEATH [None]
  - FEAR [None]
  - MULTI-ORGAN FAILURE [None]
  - STRESS [None]
  - DEPRESSION [None]
  - UNEVALUABLE EVENT [None]
  - PAIN [None]
  - ANHEDONIA [None]
  - RENAL IMPAIRMENT [None]
  - ANXIETY [None]
  - INJURY [None]
  - RENAL FAILURE [None]
  - RENAL INJURY [None]
  - EMOTIONAL DISTRESS [None]
